FAERS Safety Report 6276167-X (Version None)
Quarter: 2009Q3

REPORT INFORMATION
  Report Type: 
  Country: None (occurrence: None)
  Receive Date: 20090722
  Receipt Date: 20090714
  Transmission Date: 20100115
  Serious: Yes (Other)
  Sender: FDA-Public Use
  Company Number: US-ELI_LILLY_AND_COMPANY-US200903007380

PATIENT
  Sex: Female

DRUGS (8)
  1. HUMULIN N [Suspect]
     Indication: DIABETES MELLITUS
     Dosage: 10 U, EACH MORNING
     Route: 058
     Dates: end: 20081201
  2. HUMULIN N [Suspect]
     Dosage: 20 U, EACH EVENING
     Route: 058
     Dates: end: 20081201
  3. VITAMIN B-12 [Concomitant]
     Indication: PERNICIOUS ANAEMIA
     Dosage: 1 ML, MONTHLY (1/M)
     Dates: start: 20080301
  4. FOLIC ACID [Concomitant]
     Indication: PERNICIOUS ANAEMIA
     Dosage: 1 MG, DAILY (1/D)
     Dates: start: 20080301
  5. GLYBURIDE [Concomitant]
     Indication: TYPE 2 DIABETES MELLITUS
     Dosage: 15 MG, DAILY (1/D)
     Dates: start: 20040101
  6. GLYBURIDE [Concomitant]
     Dosage: 20 MG, DAILY (1/D)
     Dates: start: 20040101
  7. ASPIRIN [Concomitant]
     Dosage: 81 MG, DAILY (1/D)
  8. CALTRATE [Concomitant]
     Dosage: 1 UNK, DAILY (1/D)

REACTIONS (4)
  - DYSPHAGIA [None]
  - PRURITUS [None]
  - THROAT TIGHTNESS [None]
  - URTICARIA [None]
